FAERS Safety Report 7527438-8 (Version None)
Quarter: 2011Q2

REPORT INFORMATION
  Report Type: 
  Country: None (occurrence: None)
  Receive Date: 20110603
  Receipt Date: 20110517
  Transmission Date: 20111010
  Serious: Yes (Other)
  Sender: FDA-Public Use
  Company Number: JPI-P-015097

PATIENT
  Sex: Female

DRUGS (2)
  1. XYREM [Suspect]
     Indication: PRODUCT USED FOR UNKNOWN INDICATION
     Dosage: 4.5 GM (2.25 GM, 2 IN 1 D), ORAL; ORAL; 7 GM (3.5 GM, 2 IN 1 D), ORAL;
     Route: 048
     Dates: start: 20040214
  2. XYREM [Suspect]
     Indication: PRODUCT USED FOR UNKNOWN INDICATION
     Dosage: 4.5 GM (2.25 GM, 2 IN 1 D), ORAL; ORAL; 7 GM (3.5 GM, 2 IN 1 D), ORAL;
     Route: 048
     Dates: start: 20110311

REACTIONS (3)
  - SOMNAMBULISM [None]
  - INSOMNIA [None]
  - FOOT FRACTURE [None]
